FAERS Safety Report 4526960-6 (Version None)
Quarter: 2004Q4

REPORT INFORMATION
  Report Type: 
  Country: None (occurrence: None)
  Receive Date: 20041214
  Receipt Date: 20041008
  Transmission Date: 20050328
  Serious: Yes (Hospitalization, Other)
  Sender: FDA-Public Use
  Company Number: 2004S1003025

PATIENT
  Age: 45 Year
  Sex: Female
  Weight: 70.3075 kg

DRUGS (6)
  1. LEVOTHYROXINE SODIUM [Suspect]
     Indication: HYPOTHYROIDISM
     Dosage: 75MCG QD, ORAL
     Route: 048
  2. METOPROLOL TARTRATE [Concomitant]
  3. ATORVASTATIN [Concomitant]
  4. CONJUGATED ESTROGENS [Concomitant]
  5. HYDROCHLOROTHIAZIDE [Concomitant]
  6. ZOLMITRIPTAN [Concomitant]

REACTIONS (9)
  - CHEST PAIN [None]
  - DIZZINESS [None]
  - DRUG LEVEL DECREASED [None]
  - DYSPNOEA [None]
  - HEADACHE [None]
  - HYPERTENSION [None]
  - HYPOAESTHESIA [None]
  - PHARMACEUTICAL PRODUCT COMPLAINT [None]
  - TACHYPNOEA [None]
